FAERS Safety Report 23226893 (Version 1)
Quarter: 2023Q4

REPORT INFORMATION
  Report Type: Spontaneous
  Country: PH (occurrence: None)
  Receive Date: 20231124
  Receipt Date: 20231124
  Transmission Date: 20240110
  Serious: Yes (Death)
  Sender: FDA-Public Use
  Company Number: 2023A266454

PATIENT
  Sex: Female

DRUGS (1)
  1. IMFINZI [Suspect]
     Active Substance: DURVALUMAB
     Indication: Cholangiocarcinoma
     Dosage: 500.0MG UNKNOWN
     Route: 042
     Dates: start: 20231021, end: 20231021

REACTIONS (2)
  - Hepatic encephalopathy [Fatal]
  - Renal failure [Fatal]
